FAERS Safety Report 24572482 (Version 1)
Quarter: 2024Q4

REPORT INFORMATION
  Report Type: Report from Study
  Country: US (occurrence: US)
  Receive Date: 20241101
  Receipt Date: 20241101
  Transmission Date: 20250115
  Serious: Yes (Hospitalization)
  Sender: AKEBIA THERAPEUTICS
  Company Number: US-KERYX BIOPHARMACEUTICALS INC.-US-AKEB-24-001470

PATIENT
  Sex: Female

DRUGS (1)
  1. AURYXIA [Suspect]
     Active Substance: TETRAFERRIC TRICITRATE DECAHYDRATE
     Indication: Hyperphosphataemia
     Dosage: 6 DOSAGE FORM, QD
     Route: 048

REACTIONS (1)
  - Viral infection [Unknown]
